FAERS Safety Report 24843575 (Version 1)
Quarter: 2025Q1

REPORT INFORMATION
  Report Type: Spontaneous
  Country: ES (occurrence: ES)
  Receive Date: 20250115
  Receipt Date: 20250115
  Transmission Date: 20250409
  Serious: Yes (Death, Life-Threatening, Other)
  Sender: AUROBINDO
  Company Number: ES-AEMPS-1612255

PATIENT
  Age: 64 Year
  Sex: Male

DRUGS (1)
  1. AZACITIDINE [Suspect]
     Active Substance: AZACITIDINE
     Indication: Acute myeloid leukaemia
     Route: 042
     Dates: start: 20230327

REACTIONS (2)
  - Febrile neutropenia [Fatal]
  - Arthralgia [Fatal]

NARRATIVE: CASE EVENT DATE: 20230329
